FAERS Safety Report 16487075 (Version 1)
Quarter: 2019Q3

REPORT INFORMATION
  Report Type: Spontaneous
  Country: US (occurrence: US)
  Receive Date: 20190626
  Receipt Date: 20190626
  Transmission Date: 20191004
  Serious: Yes (Hospitalization)
  Sender: FDA-Public Use
  Company Number: None

PATIENT
  Age: 76 Year
  Sex: Female

DRUGS (7)
  1. PROTONIX, VITAMIN D3 [Concomitant]
  2. BACTRIM DS, BUSPIRONE [Concomitant]
  3. OXYCOD/APAP, PROPRANOLOL [Concomitant]
  4. ZOFRAN [Concomitant]
     Active Substance: ONDANSETRON HYDROCHLORIDE
  5. FERROUS GLUC, LEVOTHYROXIN [Concomitant]
  6. STELARA [Suspect]
     Active Substance: USTEKINUMAB
     Indication: CROHN^S DISEASE
     Dosage: ?          OTHER FREQUENCY:Q 8 WEEKS;?
     Route: 058
     Dates: start: 20180309
  7. MAG OXIDE, MECLIZINE [Concomitant]

REACTIONS (2)
  - Abdominal abscess [None]
  - Abdominal infection [None]

NARRATIVE: CASE EVENT DATE: 20190613
